FAERS Safety Report 8196354-3 (Version None)
Quarter: 2012Q1

REPORT INFORMATION
  Report Type: 
  Country: None (occurrence: None)
  Receive Date: 20120309
  Receipt Date: 20120306
  Transmission Date: 20120608
  Serious: No
  Sender: FDA-Public Use
  Company Number: US-PFIZER INC-2012060753

PATIENT
  Age: 34 Year
  Sex: Female
  Weight: 90.703 kg

DRUGS (3)
  1. LORATADINE AND PSEUDOEPHEDRINE SULFATE [Suspect]
     Indication: SNEEZING
     Dosage: UNK, 2X/DAY
     Route: 048
     Dates: start: 20120304
  2. LORATADINE AND PSEUDOEPHEDRINE SULFATE [Suspect]
     Indication: NASAL CONGESTION
  3. LORATADINE AND PSEUDOEPHEDRINE SULFATE [Suspect]
     Indication: RHINORRHOEA

REACTIONS (1)
  - DRUG INEFFECTIVE [None]
